FAERS Safety Report 8428590-2 (Version None)
Quarter: 2012Q2

REPORT INFORMATION
  Report Type: 
  Country: None (occurrence: None)
  Receive Date: 20120605
  Receipt Date: 20120525
  Transmission Date: 20120825
  Serious: Yes (Hospitalization, Other)
  Sender: FDA-Public Use
  Company Number: ADR-2012-01013

PATIENT
  Sex: Male

DRUGS (1)
  1. BACLOFEN [Suspect]
     Indication: MUSCLE SPASTICITY

REACTIONS (6)
  - IMPLANT SITE MASS [None]
  - MEDICAL DEVICE COMPLICATION [None]
  - IMPLANT SITE PAPULES [None]
  - PAIN [None]
  - SKIN EROSION [None]
  - IMPLANT SITE SCAR [None]
